FAERS Safety Report 10156689 (Version 2)
Quarter: 2014Q2

REPORT INFORMATION
  Report Type: Not Available
  Country: US (occurrence: US)
  Receive Date: 20140507
  Receipt Date: 20140507
  Transmission Date: 20141212
  Serious: No
  Sender: FDA-Public Use
  Company Number: US-LUPIN PHARMACEUTICALS INC.-E2B_00001303

PATIENT
  Age: 50 Year
  Sex: Female
  Weight: 59.93 kg

DRUGS (2)
  1. IMIPRAMINE HYDROCHLORIDE TABLETS USP 50MG [Suspect]
     Indication: DEPRESSION
     Dates: start: 20130622, end: 20130919
  2. ALPRAZOLAM (XANAX) [Concomitant]
     Indication: PRODUCT USED FOR UNKNOWN INDICATION
     Route: 065

REACTIONS (3)
  - Product substitution issue [Recovered/Resolved]
  - Rash erythematous [Not Recovered/Not Resolved]
  - Rash pruritic [Not Recovered/Not Resolved]
